FAERS Safety Report 9743201 (Version 2)
Quarter: 2015Q3

REPORT INFORMATION
  Report Type: Spontaneous
  Country: US (occurrence: US)
  Receive Date: 20131210
  Receipt Date: 20150804
  Transmission Date: 20151125
  Serious: No
  Sender: FDA-Public Use
  Company Number: US-GILEAD-2009-0025037

PATIENT
  Age: 54 Year
  Sex: Male
  Weight: 87.54 kg

DRUGS (19)
  1. LETAIRIS [Suspect]
     Active Substance: AMBRISENTAN
     Indication: PULMONARY ARTERIAL HYPERTENSION
     Route: 048
     Dates: start: 20090910
  2. DEMADEX [Concomitant]
     Active Substance: TORSEMIDE
  3. ACIPHEX [Concomitant]
     Active Substance: RABEPRAZOLE SODIUM
  4. ALBUTEROL. [Concomitant]
     Active Substance: ALBUTEROL
  5. PROMETH/COD [Concomitant]
  6. SPIRONOLACTONE. [Concomitant]
     Active Substance: SPIRONOLACTONE
  7. NORVASC [Concomitant]
     Active Substance: AMLODIPINE BESYLATE
  8. FENTANYL TRANSDERMAL SYSTEM [Concomitant]
     Active Substance: FENTANYL
  9. ELAVIL [Concomitant]
     Active Substance: AMITRIPTYLINE HYDROCHLORIDE
  10. IPRATROPIUM [Concomitant]
     Active Substance: IPRATROPIUM
  11. FLONASE [Concomitant]
     Active Substance: FLUTICASONE PROPIONATE
  12. NITROQUICK [Concomitant]
     Active Substance: NITROGLYCERIN
  13. ALLOPURINOL. [Concomitant]
     Active Substance: ALLOPURINOL
  14. ALLEGRA [Concomitant]
     Active Substance: FEXOFENADINE HYDROCHLORIDE
  15. ASPIRIN. [Concomitant]
     Active Substance: ASPIRIN
  16. COREG [Concomitant]
     Active Substance: CARVEDILOL
  17. ADVAIR HFA [Concomitant]
     Active Substance: FLUTICASONE PROPIONATE\SALMETEROL XINAFOATE
  18. PERCOCET [Concomitant]
     Active Substance: ACETAMINOPHEN\OXYCODONE HYDROCHLORIDE
  19. LANOXIN [Concomitant]
     Active Substance: DIGOXIN

REACTIONS (1)
  - Eye infection [Unknown]
